FAERS Safety Report 4827575-2 (Version None)
Quarter: 2005Q4

REPORT INFORMATION
  Report Type: 
  Country: None (occurrence: None)
  Receive Date: 20051114
  Receipt Date: 20051017
  Transmission Date: 20060501
  Serious: Yes (Hospitalization, Other)
  Sender: FDA-Public Use
  Company Number: FR-BRISTOL-MYERS SQUIBB COMPANY-13148705

PATIENT
  Age: 41 Year
  Sex: Female
  Weight: 74 kg

DRUGS (3)
  1. ABILIFY [Suspect]
     Indication: SCHIZOPHRENIA
     Route: 048
     Dates: start: 20050506, end: 20050901
  2. NORSET [Concomitant]
     Indication: DEPRESSION
     Dates: start: 20040101
  3. TEMESTA [Concomitant]
     Indication: ANXIETY
     Dates: start: 20050506

REACTIONS (5)
  - AGITATION [None]
  - ANXIETY [None]
  - CONDITION AGGRAVATED [None]
  - DELUSION [None]
  - HALLUCINATION [None]
